FAERS Safety Report 7710963-4 (Version None)
Quarter: 2011Q3

REPORT INFORMATION
  Report Type: 
  Country: None (occurrence: None)
  Receive Date: 20110825
  Receipt Date: 20110816
  Transmission Date: 20111222
  Serious: Yes (Hospitalization, Other)
  Sender: FDA-Public Use
  Company Number: US-ASTRAZENECA-2009UW01348

PATIENT
  Age: 56 Year
  Sex: Female

DRUGS (1)
  1. CRESTOR [Suspect]
     Dosage: 5 MG ONCE DAILY FOR YEARS
     Route: 048

REACTIONS (5)
  - SINUSITIS [None]
  - BACK INJURY [None]
  - FOOT FRACTURE [None]
  - PATELLA FRACTURE [None]
  - FALL [None]
